FAERS Safety Report 18691488 (Version 1)
Quarter: 2021Q1

REPORT INFORMATION
  Report Type: Spontaneous
  Country: JP (occurrence: JP)
  Receive Date: 20210101
  Receipt Date: 20210101
  Transmission Date: 20210419
  Serious: Yes (Other)
  Sender: FDA-Public Use
  Company Number: JP-ASTRAZENECA-2020SF74021

PATIENT
  Age: 78 Year
  Sex: Female

DRUGS (1)
  1. LYNPARZA [Suspect]
     Active Substance: OLAPARIB
     Indication: OVARIAN CANCER
     Dosage: UNKNOWN DOSE AND FREQUENCY
     Route: 048
     Dates: start: 20180518, end: 20180927

REACTIONS (2)
  - Renal impairment [Unknown]
  - Anaemia [Unknown]
